FAERS Safety Report 5216548-6 (Version None)
Quarter: 2007Q1

REPORT INFORMATION
  Report Type: 
  Country: None (occurrence: None)
  Receive Date: 20061130
  Receipt Date: 20060814
  Transmission Date: 20070707
  Serious: Yes (Hospitalization)
  Sender: FDA-Public Use
  Company Number: US200608003373

PATIENT
  Sex: Female
  Weight: 108.8 kg

DRUGS (4)
  1. ZYPREXA [Suspect]
     Dates: start: 19960101, end: 19990101
  2. QUETIAPINE FUMARATE [Concomitant]
  3. DIVALPROEX SODIUM [Concomitant]
  4. LITHIUM CARBONATE [Concomitant]

REACTIONS (6)
  - DIABETES MELLITUS [None]
  - HYPERGLYCAEMIC HYPEROSMOLAR NONKETOTIC SYNDROME [None]
  - HYPERINSULINISM [None]
  - HYPERTENSION [None]
  - METABOLIC DISORDER [None]
  - OBESITY [None]
